FAERS Safety Report 15764761 (Version 2)
Quarter: 2021Q1

REPORT INFORMATION
  Report Type: Spontaneous
  Country: DE (occurrence: DE)
  Receive Date: 20181227
  Receipt Date: 20210125
  Transmission Date: 20210419
  Serious: Yes (Other)
  Sender: FDA-Public Use
  Company Number: DE-TEVA-2018-DE-991581

PATIENT
  Age: 65 Year
  Sex: Female

DRUGS (1)
  1. VALSARTAN ABZ [Suspect]
     Active Substance: VALSARTAN
     Route: 048

REACTIONS (17)
  - Initial insomnia [Unknown]
  - Depression [Unknown]
  - Irritability [Unknown]
  - Product impurity [Unknown]
  - Paraesthesia [Unknown]
  - Disturbance in attention [Unknown]
  - Restlessness [Unknown]
  - Breast cancer female [Unknown]
  - Sense of oppression [Unknown]
  - Memory impairment [Unknown]
  - Apathy [Unknown]
  - Fear of disease [Unknown]
  - Anxiety [Unknown]
  - Heart rate increased [Unknown]
  - Hyperhidrosis [Unknown]
  - Dizziness [Unknown]
  - Merycism [Unknown]

NARRATIVE: CASE EVENT DATE: 20201124
